FAERS Safety Report 8569783-3 (Version None)
Quarter: 2012Q3

REPORT INFORMATION
  Report Type: 
  Country: None (occurrence: None)
  Receive Date: 20120803
  Receipt Date: 20120523
  Transmission Date: 20120928
  Serious: No
  Sender: FDA-Public Use
  Company Number: US-ABBOTT-12P-163-0938216-00

PATIENT
  Sex: Female
  Weight: 72.64 kg

DRUGS (4)
  1. NIASPAN [Suspect]
     Indication: BLOOD CHOLESTEROL INCREASED
     Dosage: AT BEDTIME
     Dates: start: 20120501
  2. HYDROCHLOROTHIAZDE TAB [Concomitant]
     Indication: HYPERTENSION
  3. METOPROLOL TARTRATE [Concomitant]
     Indication: HYPERTENSION
  4. CITRACAL + D [Concomitant]
     Indication: PRODUCT USED FOR UNKNOWN INDICATION

REACTIONS (1)
  - ARTHRALGIA [None]
